FAERS Safety Report 17145785 (Version 1)
Quarter: 2019Q4

REPORT INFORMATION
  Report Type: Spontaneous
  Country: CA (occurrence: CA)
  Receive Date: 20191212
  Receipt Date: 20191212
  Transmission Date: 20200122
  Serious: Yes (Other)
  Sender: FDA-Public Use
  Company Number: CA-JNJFOC-20191210653

PATIENT
  Age: 35 Year
  Sex: Female

DRUGS (3)
  1. REACTINE (CETIRIZINE DIHYDROCHLORIDE) [Suspect]
     Active Substance: CETIRIZINE HYDROCHLORIDE
     Indication: PRODUCT USED FOR UNKNOWN INDICATION
     Route: 048
  2. OMALIZUMAB. [Suspect]
     Active Substance: OMALIZUMAB
     Indication: CHRONIC SPONTANEOUS URTICARIA
     Dosage: 5 TIMES 300 MG DOSE TAKEN ON AN UNSPECIFIED DATE TO UNSPECIFIED DATE
     Route: 058
  3. OMALIZUMAB. [Suspect]
     Active Substance: OMALIZUMAB
     Dosage: 10 TIMES UNSPECIFIED DOSE AND FREQUENCY TAKEN SINCE ON AN UNSPECIFIED DATE TO ON AN UNSPECIFIED DATE
     Route: 058

REACTIONS (14)
  - Systemic scleroderma [Recovered/Resolved]
  - Angioedema [Recovered/Resolved]
  - Burning sensation [Recovered/Resolved]
  - Musculoskeletal pain [Recovered/Resolved]
  - Skin plaque [Recovered/Resolved]
  - Pruritus [Recovered/Resolved]
  - Urticaria [Recovered/Resolved]
  - Bed bug infestation [Recovered/Resolved]
  - Inappropriate schedule of product administration [Recovered/Resolved]
  - Middle insomnia [Recovered/Resolved]
  - Somnolence [Recovered/Resolved]
  - Injection site haemorrhage [Recovered/Resolved]
  - Wound [Recovered/Resolved]
  - Musculoskeletal stiffness [Recovered/Resolved]
